FAERS Safety Report 6717398-1 (Version None)
Quarter: 2010Q2

REPORT INFORMATION
  Report Type: 
  Country: None (occurrence: None)
  Receive Date: 20100510
  Receipt Date: 20100430
  Transmission Date: 20101027
  Serious: Yes (Hospitalization, Other)
  Sender: FDA-Public Use
  Company Number: US-ASTRAZENECA-2010SE19695

PATIENT
  Age: 43 Year
  Sex: Female

DRUGS (6)
  1. NEXIUM [Suspect]
     Indication: GASTROOESOPHAGEAL REFLUX DISEASE
     Route: 048
     Dates: start: 19910101
  2. PRILOSEC [Suspect]
     Indication: GASTROOESOPHAGEAL REFLUX DISEASE
     Dosage: DAILY
     Route: 048
     Dates: end: 19910101
  3. SINGULAIR [Concomitant]
  4. ZYRTEC [Concomitant]
  5. THEOPHYLLINE [Concomitant]
  6. PAIN MED [Concomitant]

REACTIONS (10)
  - CHEST PAIN [None]
  - COLOSTOMY [None]
  - DRUG INEFFECTIVE [None]
  - ENTEROVESICAL FISTULA [None]
  - GASTROOESOPHAGEAL REFLUX DISEASE [None]
  - ILL-DEFINED DISORDER [None]
  - INCORRECT DOSE ADMINISTERED [None]
  - INTESTINAL OBSTRUCTION [None]
  - OVARIAN CANCER RECURRENT [None]
  - THROAT IRRITATION [None]
